FAERS Safety Report 7911226-4 (Version None)
Quarter: 2011Q4

REPORT INFORMATION
  Report Type: 
  Country: None (occurrence: None)
  Receive Date: 20111108
  Receipt Date: 20111027
  Transmission Date: 20120403
  Serious: Yes (Hospitalization, Disabling, Other)
  Sender: FDA-Public Use
  Company Number: 2010SP041217

PATIENT
  Age: 65 Year
  Sex: Male

DRUGS (3)
  1. PEG-INTERFERON [Suspect]
     Indication: HEPATITIS C
     Dates: start: 20070101, end: 20080501
  2. RIBAVIRIN [Suspect]
     Indication: HEPATITIS C
     Dates: start: 20070401, end: 20080501
  3. PEGASYS [Suspect]
     Indication: HEPATITIS C
     Dates: start: 20070401, end: 20080501

REACTIONS (11)
  - DRUG INEFFECTIVE [None]
  - DISEASE RECURRENCE [None]
  - DEPRESSION [None]
  - ABASIA [None]
  - DYSPEPSIA [None]
  - ANAEMIA [None]
  - APHAGIA [None]
  - ARTHRALGIA [None]
  - LOSS OF CONSCIOUSNESS [None]
  - PAIN IN EXTREMITY [None]
  - HEPATITIS C [None]
